FAERS Safety Report 9151083 (Version 1)
Quarter: 2013Q1

REPORT INFORMATION
  Report Type: Spontaneous
  Country: AU (occurrence: AU)
  Receive Date: 20130308
  Receipt Date: 20130308
  Transmission Date: 20140127
  Serious: Yes (Death, Hospitalization)
  Sender: FDA-Public Use
  Company Number: AU-PFIZER INC-HQWYE404523JUL04

PATIENT
  Age: 74 Year
  Sex: Female

DRUGS (10)
  1. METHOTREXATE [Suspect]
     Indication: RHEUMATOID ARTHRITIS
     Dosage: UNK
  2. HYDROXYCHLOROQUINE SULFATE [Suspect]
     Indication: RHEUMATOID ARTHRITIS
     Dosage: UNK
  3. SULFASALAZINE [Suspect]
     Indication: RHEUMATOID ARTHRITIS
     Dosage: UNK
  4. ARAVA [Interacting]
     Indication: RHEUMATOID ARTHRITIS
     Dosage: UNK
     Route: 048
  5. DILTIAZEM [Concomitant]
     Route: 048
  6. METHYLPREDNISOLONE [Concomitant]
     Route: 048
  7. METOPROLOL [Concomitant]
     Route: 048
  8. OMEPRAZOLE [Concomitant]
     Route: 048
  9. PAROXETINE [Concomitant]
     Route: 048
  10. PREDNISOLONE [Concomitant]

REACTIONS (2)
  - Drug interaction [Fatal]
  - Pancytopenia [Fatal]
